FAERS Safety Report 24105400 (Version 1)
Quarter: 2024Q3

REPORT INFORMATION
  Report Type: Spontaneous
  Country: US (occurrence: US)
  Receive Date: 20240717
  Receipt Date: 20240717
  Transmission Date: 20241017
  Serious: Yes (Other)
  Sender: AMGEN
  Company Number: US-AMGEN-USASP2024136593

PATIENT

DRUGS (7)
  1. PREDNISONE [Suspect]
     Active Substance: PREDNISONE
     Indication: Diffuse large B-cell lymphoma
     Dosage: 100 MILLIGRAM, ON DAY 1 THORUGH 5 IN A 21 DAY CYCLE, 6 CYCLES
     Route: 048
  2. FILGRASTIM [Suspect]
     Active Substance: FILGRASTIM
     Indication: Neutropenia
     Dosage: UNK
     Route: 065
  3. RITUXIMAB [Suspect]
     Active Substance: RITUXIMAB
     Indication: Diffuse large B-cell lymphoma
     Dosage: 375 MILLIGRAM/SQ. METER, 6 CYCLES
     Route: 065
  4. CYCLOPHOSPHAMIDE [Suspect]
     Active Substance: CYCLOPHOSPHAMIDE
     Indication: Diffuse large B-cell lymphoma
     Dosage: 750 MILLIGRAM/SQ. METER
     Route: 065
  5. DOXORUBICIN [Suspect]
     Active Substance: DOXORUBICIN
     Indication: Diffuse large B-cell lymphoma
     Dosage: 50 MILLIGRAM/SQ. METER
     Route: 065
  6. VINCRISTINE [Suspect]
     Active Substance: VINCRISTINE
     Indication: Diffuse large B-cell lymphoma
     Dosage: 1.4 MILLIGRAM/SQ. METER
     Route: 065
  7. SELINEXOR [Suspect]
     Active Substance: SELINEXOR
     Indication: Diffuse large B-cell lymphoma
     Dosage: UNK UNK, QWK
     Route: 065

REACTIONS (56)
  - Neutropenia [Unknown]
  - Thrombosis [Unknown]
  - Non-Hodgkin^s lymphoma [Unknown]
  - Pneumonia [Unknown]
  - Syncope [Unknown]
  - Nausea [Unknown]
  - Vomiting [Unknown]
  - Fatigue [Unknown]
  - Anaemia [Unknown]
  - Hypertension [Unknown]
  - Supraventricular tachycardia [Unknown]
  - Peripheral sensory neuropathy [Unknown]
  - Eye disorder [Unknown]
  - Sinus tachycardia [Unknown]
  - Upper respiratory tract infection [Unknown]
  - Treatment noncompliance [Unknown]
  - Nail disorder [Unknown]
  - Constipation [Unknown]
  - Dizziness [Unknown]
  - Sinus congestion [Unknown]
  - Vision blurred [Unknown]
  - Headache [Unknown]
  - Pain [Unknown]
  - Gastrooesophageal reflux disease [Unknown]
  - Cough [Unknown]
  - Diarrhoea [Unknown]
  - Alopecia [Unknown]
  - Pollakiuria [Unknown]
  - Lip pain [Unknown]
  - Rash [Unknown]
  - Skin infection [Unknown]
  - Abdominal pain [Unknown]
  - Non-cardiac chest pain [Unknown]
  - Dyspnoea [Unknown]
  - Asthenia [Unknown]
  - Infection [Unknown]
  - Fall [Unknown]
  - Amnesia [Unknown]
  - Night sweats [Unknown]
  - Urinary incontinence [Unknown]
  - Decreased appetite [Unknown]
  - Contusion [Unknown]
  - Temperature intolerance [Unknown]
  - Depression [Unknown]
  - Dysuria [Unknown]
  - Tinnitus [Unknown]
  - Oedema peripheral [Unknown]
  - Thirst [Unknown]
  - Irritability [Unknown]
  - Muscle spasms [Unknown]
  - Paraesthesia [Unknown]
  - Chills [Unknown]
  - Oropharyngeal pain [Unknown]
  - Abdominal distension [Unknown]
  - Gastritis [Unknown]
  - Skin disorder [Unknown]
